FAERS Safety Report 15063832 (Version 1)
Quarter: 2018Q2

REPORT INFORMATION
  Report Type: Report from Study
  Country: US (occurrence: US)
  Receive Date: 20180625
  Receipt Date: 20180625
  Transmission Date: 20180711
  Serious: No
  Sender: FDA-Public Use
  Company Number: US-AMGEN-USASL2016060661

PATIENT
  Age: 67 Year
  Sex: Female

DRUGS (1)
  1. REPATHA [Suspect]
     Active Substance: EVOLOCUMAB
     Indication: PRODUCT USED FOR UNKNOWN INDICATION
     Dosage: UNK
     Route: 065

REACTIONS (12)
  - Abdominal pain [Unknown]
  - Back pain [Not Recovered/Not Resolved]
  - Hypophagia [Unknown]
  - Respiratory tract congestion [Unknown]
  - Constipation [Unknown]
  - Pain in extremity [Unknown]
  - Muscular weakness [Unknown]
  - Decreased appetite [Unknown]
  - Pyrexia [Unknown]
  - Tremor [Unknown]
  - Headache [Unknown]
  - Feeling abnormal [Unknown]
